FAERS Safety Report 12218604 (Version 2)
Quarter: 2016Q2

REPORT INFORMATION
  Report Type: Spontaneous
  Country: JP (occurrence: JP)
  Receive Date: 20160329
  Receipt Date: 20160415
  Transmission Date: 20160815
  Serious: Yes (Death)
  Sender: FDA-Public Use
  Company Number: JP-BAYER-2016-057076

PATIENT
  Age: 71 Year
  Sex: Male

DRUGS (3)
  1. KOGENATE FS [Suspect]
     Active Substance: ANTIHEMOPHILIC FACTOR, HUMAN RECOMBINANT
     Indication: ACQUIRED HAEMOPHILIA
     Dosage: UNK
     Route: 041
     Dates: start: 20060101, end: 20060101
  2. RECOMBINATE [FACTOR VIII, RECOMBINANT] [Concomitant]
     Indication: ACQUIRED HAEMOPHILIA
  3. PLASMA, FRESH FROZEN [Concomitant]
     Active Substance: HUMAN PLASMA
     Indication: ACQUIRED HAEMOPHILIA

REACTIONS (3)
  - Shock haemorrhagic [Fatal]
  - Factor VIII inhibition [Fatal]
  - Multiple organ dysfunction syndrome [Fatal]
